FAERS Safety Report 8103625-5 (Version None)
Quarter: 2012Q1

REPORT INFORMATION
  Report Type: 
  Country: None (occurrence: None)
  Receive Date: 20120201
  Receipt Date: 20120127
  Transmission Date: 20120608
  Serious: Yes (Other)
  Sender: FDA-Public Use
  Company Number: US-PFIZER INC-2007078585

PATIENT
  Sex: Female

DRUGS (1)
  1. CHANTIX [Suspect]
     Dosage: 1 MG, 2X/DAY

REACTIONS (18)
  - STRESS [None]
  - EMOTIONAL DISORDER [None]
  - ARTHRITIS [None]
  - NERVOUSNESS [None]
  - INSOMNIA [None]
  - FOOT FRACTURE [None]
  - PRURITUS [None]
  - BURNING SENSATION [None]
  - NIGHTMARE [None]
  - IMPAIRED HEALING [None]
  - NICOTINE DEPENDENCE [None]
  - WITHDRAWAL SYNDROME [None]
  - ANGER [None]
  - WEIGHT INCREASED [None]
  - VOMITING [None]
  - FEAR [None]
  - FIBROMYALGIA [None]
  - DEPRESSION [None]
